FAERS Safety Report 12144304 (Version 1)
Quarter: 2016Q1

REPORT INFORMATION
  Report Type: Spontaneous
  Country: IN (occurrence: US)
  Receive Date: 20160304
  Receipt Date: 20160304
  Transmission Date: 20160526
  Serious: Yes (Death, Hospitalization)
  Sender: FDA-Public Use
  Company Number: IN-SCIEGEN PHARMACEUTICALS INC-2016SCILIT00005

PATIENT
  Age: 72 Year
  Sex: Male

DRUGS (1)
  1. NEVIRAPINE TABLETS [Suspect]
     Active Substance: NEVIRAPINE
     Indication: TOXIC EPIDERMAL NECROLYSIS
     Dosage: UNK
     Route: 065

REACTIONS (7)
  - Mouth ulceration [Unknown]
  - Angular cheilitis [Unknown]
  - Rash erythematous [Unknown]
  - Genital ulceration [Unknown]
  - Eye ulcer [Unknown]
  - Nikolsky^s sign [Unknown]
  - Toxic epidermal necrolysis [Fatal]
